FAERS Safety Report 9949526 (Version 1)
Quarter: 2014Q1

REPORT INFORMATION
  Report Type: Report from Study
  Country: US (occurrence: US)
  Receive Date: 20140304
  Receipt Date: 20140304
  Transmission Date: 20141002
  Serious: No
  Sender: FDA-Public Use
  Company Number: US-ABBVIE-13P-163-1068831-00

PATIENT
  Age: 46 Year
  Sex: Male

DRUGS (9)
  1. HUMIRA [Suspect]
     Indication: CROHN^S DISEASE
     Dates: start: 20130213, end: 20130213
  2. HUMIRA [Suspect]
     Dates: start: 20130227, end: 20130227
  3. HUMIRA [Suspect]
     Dates: start: 20130313
  4. LEXAPRO [Concomitant]
     Indication: DEPRESSION
  5. ABILIFY [Concomitant]
     Indication: DEPRESSION
  6. XANAX [Concomitant]
     Indication: ANXIETY
  7. KLONOPIN [Concomitant]
     Indication: ANXIETY
  8. UNKNOWN BLOOD PRESSURE MEDICATION [Concomitant]
     Indication: BLOOD PRESSURE
  9. FEXOFENADINE [Concomitant]
     Indication: HYPERSENSITIVITY

REACTIONS (2)
  - Injection site bruising [Not Recovered/Not Resolved]
  - Visual impairment [Not Recovered/Not Resolved]
